FAERS Safety Report 22644933 (Version 1)
Quarter: 2023Q2

REPORT INFORMATION
  Report Type: Spontaneous
  Country: US (occurrence: None)
  Receive Date: 20230625
  Receipt Date: 20230625
  Transmission Date: 20230722
  Serious: Yes (Other)
  Sender: FDA-Public Use
  Company Number: None

PATIENT
  Age: 69 Year
  Sex: Female
  Weight: 54.9 kg

DRUGS (5)
  1. REPATHA [Suspect]
     Active Substance: EVOLOCUMAB
     Indication: Blood cholesterol increased
     Dosage: OTHER QUANTITY : 8 2/MONTH;?OTHER FREQUENCY : 2/MONTH;?
     Route: 058
     Dates: start: 20230130, end: 20230508
  2. ZETIA [Concomitant]
     Active Substance: EZETIMIBE
  3. TRAZODONE [Concomitant]
     Active Substance: TRAZODONE HYDROCHLORIDE
  4. BORON [Concomitant]
     Active Substance: BORON
  5. VITAMIN D3 [Concomitant]
     Active Substance: CHOLECALCIFEROL

REACTIONS (8)
  - Myalgia [None]
  - Gait disturbance [None]
  - Headache [None]
  - Presyncope [None]
  - Muscle spasms [None]
  - Muscle spasms [None]
  - Hypoaesthesia [None]
  - Asthenia [None]

NARRATIVE: CASE EVENT DATE: 20230401
